FAERS Safety Report 9666594 (Version 1)
Quarter: 2013Q4

REPORT INFORMATION
  Report Type: Spontaneous
  Country: US (occurrence: None)
  Receive Date: 20131101
  Receipt Date: 20131101
  Transmission Date: 20140711
  Serious: Yes (Other)
  Sender: FDA-Public Use
  Company Number: None

PATIENT
  Age: 63 Year
  Sex: Male
  Weight: 88.45 kg

DRUGS (1)
  1. RITUXIMAB [Suspect]
     Indication: LINEAR IGA DISEASE
     Dates: start: 20130627

REACTIONS (2)
  - Chest pain [None]
  - Cardiac stress test abnormal [None]
